FAERS Safety Report 5406478-9 (Version None)
Quarter: 2007Q3

REPORT INFORMATION
  Report Type: 
  Country: None (occurrence: None)
  Receive Date: 20070806
  Receipt Date: 20070723
  Transmission Date: 20080115
  Serious: Yes (Hospitalization, Disabling)
  Sender: FDA-Public Use
  Company Number: FR-ELI_LILLY_AND_COMPANY-FR200707006325

PATIENT
  Age: 72 Year
  Sex: Female

DRUGS (6)
  1. EVISTA [Suspect]
     Indication: OSTEOPOROSIS
     Dosage: 60 MG, DAILY (1/D)
     Route: 048
     Dates: start: 20020101
  2. PRAVASTATIN [Concomitant]
  3. CALCIDOSE [Concomitant]
  4. ALLOPURINOL [Concomitant]
  5. SERC /00141802/ [Concomitant]
  6. ANTIHYPERTENSIVES [Concomitant]

REACTIONS (2)
  - CEREBRAL INFARCTION [None]
  - DYSPHASIA [None]
